FAERS Safety Report 5714050-6 (Version None)
Quarter: 2008Q2

REPORT INFORMATION
  Report Type: 
  Country: None (occurrence: None)
  Receive Date: 20080422
  Receipt Date: 20080422
  Transmission Date: 20081010
  Serious: No
  Sender: FDA-Public Use
  Company Number: None

PATIENT
  Age: 55 Year
  Sex: Male
  Weight: 75.7507 kg

DRUGS (2)
  1. CEPHALEXIN MONOHYDRATE [Suspect]
     Indication: POST PROCEDURAL INFECTION
     Dosage: 500 MG THREE TIMES A DAY PO
     Route: 048
     Dates: start: 20080417, end: 20080418
  2. CEPHALEXIN MONOHYDRATE [Suspect]
     Indication: PROPHYLAXIS
     Dosage: 500 MG THREE TIMES A DAY PO
     Route: 048
     Dates: start: 20080417, end: 20080418

REACTIONS (1)
  - VOMITING [None]
